FAERS Safety Report 8888205 (Version 1)
Quarter: 2012Q4

REPORT INFORMATION
  Report Type: 
  Country: IT (occurrence: IT)
  Receive Date: 20121106
  Receipt Date: 20121106
  Transmission Date: 20130627
  Serious: Yes (Hospitalization)
  Sender: FDA-Public Use
  Company Number: IT-NOVOPROD-363022

PATIENT
  Age: 78 Year
  Sex: Female

DRUGS (1)
  1. NOVOMIX 30 FLEXPEN [Suspect]
     Indication: DIABETES MELLITUS
     Dosage: 34 U, qd
     Route: 058
     Dates: start: 20110705

REACTIONS (2)
  - Bradycardia [Recovered/Resolved]
  - Hypoglycaemia [Recovered/Resolved]
